FAERS Safety Report 5135022-9 (Version None)
Quarter: 2006Q4

REPORT INFORMATION
  Report Type: 
  Country: None (occurrence: None)
  Receive Date: 20061025
  Receipt Date: 20061013
  Transmission Date: 20070319
  Serious: Yes (Death)
  Sender: FDA-Public Use
  Company Number: GB-MERCK-0610GBR00110

PATIENT
  Age: 21 Year
  Sex: Male

DRUGS (2)
  1. PRIMAXIN [Suspect]
     Indication: NEUTROPENIC SEPSIS
     Route: 030
     Dates: start: 20060924, end: 20060924
  2. PIPERACILLIN SODIUM AND TAZOBACTAM SODIUM [Concomitant]
     Route: 065
     Dates: start: 20060922, end: 20060924

REACTIONS (2)
  - ANAPHYLACTOID REACTION [None]
  - CARDIAC ARREST [None]
